FAERS Safety Report 8287296-3 (Version None)
Quarter: 2012Q2

REPORT INFORMATION
  Report Type: 
  Country: None (occurrence: None)
  Receive Date: 20120416
  Receipt Date: 20120416
  Transmission Date: 20120825
  Serious: Yes (Other)
  Sender: FDA-Public Use
  Company Number: None

PATIENT
  Age: 66 Year
  Sex: Male
  Weight: 92.986 kg

DRUGS (1)
  1. METFORMIN HCL [Suspect]

REACTIONS (2)
  - ABDOMINAL PAIN [None]
  - BLOOD PRESSURE INCREASED [None]
